FAERS Safety Report 5199819-1 (Version None)
Quarter: 2007Q1

REPORT INFORMATION
  Report Type: 
  Country: None (occurrence: None)
  Receive Date: 20070105
  Receipt Date: 20061227
  Transmission Date: 20070707
  Serious: Yes (Other)
  Sender: FDA-Public Use
  Company Number: GB-AVENTIS-200710014EU

PATIENT
  Age: 54 Year
  Sex: Male

DRUGS (47)
  1. CLEXANE [Suspect]
     Indication: DRUG USE FOR UNKNOWN INDICATION
     Route: 058
  2. FRUSEMIDE [Suspect]
     Indication: DRUG USE FOR UNKNOWN INDICATION
     Route: 042
  3. FRUSEMIDE [Suspect]
     Route: 048
  4. HYDROCORTISONE [Suspect]
     Indication: DRUG USE FOR UNKNOWN INDICATION
  5. ACTRAPID [Suspect]
     Indication: DRUG USE FOR UNKNOWN INDICATION
     Route: 042
  6. ALFENTANIL [Suspect]
     Indication: DRUG USE FOR UNKNOWN INDICATION
  7. AMOXICILLIN [Suspect]
     Indication: DRUG USE FOR UNKNOWN INDICATION
     Route: 042
     Dates: start: 20060913
  8. AQUASEPT [Suspect]
     Indication: DRUG USE FOR UNKNOWN INDICATION
  9. BACTROBAN [Suspect]
     Indication: DRUG USE FOR UNKNOWN INDICATION
  10. CALCIUM CHLORIDE [Suspect]
     Indication: DRUG USE FOR UNKNOWN INDICATION
  11. CALCIUM GLUCONATE [Suspect]
     Indication: DRUG USE FOR UNKNOWN INDICATION
     Route: 042
  12. CEFTRIAXONE [Suspect]
     Indication: DRUG USE FOR UNKNOWN INDICATION
     Route: 042
  13. DOBUTAMINE [Suspect]
     Indication: DRUG USE FOR UNKNOWN INDICATION
  14. FLUCONAZOLE [Suspect]
     Indication: DRUG USE FOR UNKNOWN INDICATION
     Route: 042
  15. FRAGMIN [Suspect]
     Indication: DRUG USE FOR UNKNOWN INDICATION
  16. LACTULOSE [Suspect]
     Indication: DRUG USE FOR UNKNOWN INDICATION
  17. LANSOPRAZOLE [Suspect]
     Indication: DRUG USE FOR UNKNOWN INDICATION
  18. LORAZEPAM [Suspect]
     Indication: DRUG USE FOR UNKNOWN INDICATION
  19. MAGNESIUM SULFATE [Suspect]
     Indication: DRUG USE FOR UNKNOWN INDICATION
  20. NORADRENALINE /00127501/ [Suspect]
     Indication: DRUG USE FOR UNKNOWN INDICATION
  21. OMEPRAZOLE [Suspect]
     Indication: DRUG USE FOR UNKNOWN INDICATION
     Route: 042
  22. ACETAMINOPHEN [Suspect]
     Indication: DRUG USE FOR UNKNOWN INDICATION
  23. PIRITON [Suspect]
     Indication: DRUG USE FOR UNKNOWN INDICATION
     Route: 042
  24. POTASSIUM CHLORIDE [Suspect]
     Indication: DRUG USE FOR UNKNOWN INDICATION
  25. POTASSIUM PHOSPHATES [Suspect]
     Indication: DRUG USE FOR UNKNOWN INDICATION
  26. PROPOFOL [Suspect]
     Indication: DRUG USE FOR UNKNOWN INDICATION
  27. VENTOLIN [Suspect]
     Indication: DRUG USE FOR UNKNOWN INDICATION
  28. SANDO K                            /00031402/ [Suspect]
     Indication: DRUG USE FOR UNKNOWN INDICATION
     Dosage: DOSE: 2 DF
  29. SILVER SULPHADIAZINE [Suspect]
     Indication: DRUG USE FOR UNKNOWN INDICATION
     Route: 061
  30. SIMVASTATIN [Suspect]
     Indication: DRUG USE FOR UNKNOWN INDICATION
  31. SODIUM BICARBONATE [Suspect]
     Indication: DRUG USE FOR UNKNOWN INDICATION
     Route: 042
  32. SODIUM CHLORIDE [Suspect]
     Indication: DRUG USE FOR UNKNOWN INDICATION
     Dosage: DOSE: 0.9 %
     Route: 042
  33. THIAMIN [Suspect]
     Indication: DRUG USE FOR UNKNOWN INDICATION
     Route: 048
  34. TINZAPARIN [Suspect]
     Indication: DRUG USE FOR UNKNOWN INDICATION
  35. VITAMIN K /00032401/ [Suspect]
     Indication: DRUG USE FOR UNKNOWN INDICATION
  36. AMOXICILLIN [Concomitant]
     Route: 048
  37. ASPIRIN [Concomitant]
     Route: 048
  38. ATROVENT [Concomitant]
  39. CIPROFLOXACIN [Concomitant]
     Route: 042
  40. AMOXICILLIN + CLAVULANATE POTASSIUM [Concomitant]
     Dates: start: 20060913
  41. ERYTHROMYCIN [Concomitant]
  42. METOCHLOPRAMIDE [Concomitant]
     Route: 042
  43. MIDODRINE [Concomitant]
     Route: 048
  44. PANTOPRAZOLE SODIUM [Concomitant]
     Route: 042
  45. PIPERACILLIN AND TAZOBACTAM [Concomitant]
  46. VANCOMYCIN [Concomitant]
     Route: 042
  47. ZOPICLONE [Concomitant]
     Route: 048

REACTIONS (1)
  - TOXIC EPIDERMAL NECROLYSIS [None]
